FAERS Safety Report 6111698-4 (Version None)
Quarter: 2009Q1

REPORT INFORMATION
  Report Type: 
  Country: None (occurrence: None)
  Receive Date: 20090310
  Receipt Date: 20090310
  Transmission Date: 20090719
  Serious: No
  Sender: FDA-Public Use
  Company Number: None

PATIENT
  Sex: Female
  Weight: 62.5964 kg

DRUGS (1)
  1. LEVAQUIN [Suspect]
     Indication: SINOBRONCHITIS
     Dates: start: 20090127, end: 20090203

REACTIONS (6)
  - MYALGIA [None]
  - NO REACTION ON PREVIOUS EXPOSURE TO DRUG [None]
  - PAIN IN EXTREMITY [None]
  - PARAESTHESIA [None]
  - SLEEP DISORDER [None]
  - WALKING AID USER [None]
